FAERS Safety Report 9723088 (Version 2)
Quarter: 2013Q4

REPORT INFORMATION
  Report Type: Spontaneous
  Country: BR (occurrence: BR)
  Receive Date: 20131202
  Receipt Date: 20131202
  Transmission Date: 20140711
  Serious: Yes (Hospitalization)
  Sender: FDA-Public Use
  Company Number: BR-BRACCO-000156

PATIENT
  Age: 41 Year
  Sex: Male
  Weight: 77 kg

DRUGS (4)
  1. IOPAMIRON [Suspect]
     Indication: CATHETERISATION CARDIAC
     Route: 013
     Dates: start: 20131107, end: 20131107
  2. IOPAMIRON [Suspect]
     Indication: CATHETERISATION CARDIAC
     Route: 013
     Dates: start: 20131107, end: 20131107
  3. ATENOLOL [Concomitant]
  4. LOSARTAN [Concomitant]

REACTIONS (5)
  - Cerebrovascular accident [Recovering/Resolving]
  - VIIth nerve paralysis [Recovered/Resolved]
  - Visual impairment [Recovered/Resolved]
  - Hemiplegia [Recovering/Resolving]
  - Headache [Unknown]
